FAERS Safety Report 4906240-7 (Version None)
Quarter: 2006Q1

REPORT INFORMATION
  Report Type: 
  Country: None (occurrence: None)
  Receive Date: 20060207
  Receipt Date: 20060131
  Transmission Date: 20060701
  Serious: Yes (Hospitalization)
  Sender: FDA-Public Use
  Company Number: 2006015724

PATIENT
  Sex: Female

DRUGS (3)
  1. LYRICA [Suspect]
     Indication: ILL-DEFINED DISORDER
     Dosage: ORAL
     Route: 048
  2. TRAMADOL HCL [Concomitant]
  3. NOVALGIN (METAMIZOLE SODIUM) [Concomitant]

REACTIONS (2)
  - DRUG TOXICITY [None]
  - SKIN INFLAMMATION [None]
